FAERS Safety Report 9540274 (Version 2)
Quarter: 2014Q2

REPORT INFORMATION
  Report Type: Report from Study
  Country: US (occurrence: US)
  Receive Date: 20130920
  Receipt Date: 20140619
  Transmission Date: 20141212
  Serious: Yes (Death)
  Sender: FDA-Public Use
  Company Number: PHEH2011US013405

PATIENT
  Sex: Male
  Weight: 40 kg

DRUGS (1)
  1. EXJADE [Suspect]
     Indication: SICKLE CELL ANAEMIA
     Dosage: 1000 MG, DAILY
     Route: 048
     Dates: start: 20090223

REACTIONS (5)
  - Hepatitis C [Fatal]
  - Acute hepatic failure [Fatal]
  - Portal vein thrombosis [Fatal]
  - Hepatic cirrhosis [Fatal]
  - Iron overload [Fatal]
